FAERS Safety Report 5722077-3 (Version None)
Quarter: 2008Q2

REPORT INFORMATION
  Report Type: 
  Country: None (occurrence: None)
  Receive Date: 20080429
  Receipt Date: 20080418
  Transmission Date: 20081010
  Serious: Yes (Other)
  Sender: FDA-Public Use
  Company Number: JP-PFIZER INC-2008035186

PATIENT
  Age: 65 Year
  Sex: Male

DRUGS (2)
  1. EPLERENONE [Suspect]
     Dosage: DAILY DOSE:200MG
     Route: 048
  2. ALL OTHER THERAPEUTIC PRODUCTS [Concomitant]

REACTIONS (1)
  - PAIN [None]
